FAERS Safety Report 8315384-1 (Version None)
Quarter: 2012Q2

REPORT INFORMATION
  Report Type: 
  Country: None (occurrence: None)
  Receive Date: 20120426
  Receipt Date: 20120423
  Transmission Date: 20120825
  Serious: Yes (Hospitalization, Other)
  Sender: FDA-Public Use
  Company Number: CO-BIOMARINP-002473

PATIENT
  Age: 12 Year
  Sex: Male

DRUGS (3)
  1. PENICILLIN G, CRYSTALLINE-POTASSIUM [Concomitant]
  2. NAGLAZYME [Suspect]
     Indication: MUCOPOLYSACCHARIDOSIS VI
     Route: 041
     Dates: start: 20101208
  3. UNSPECIFIED ANTIBIOTICS [Concomitant]

REACTIONS (1)
  - PNEUMONIA [None]
